FAERS Safety Report 7974937-0 (Version None)
Quarter: 2011Q4

REPORT INFORMATION
  Report Type: 
  Country: None (occurrence: None)
  Receive Date: 20111213
  Receipt Date: 20111130
  Transmission Date: 20120403
  Serious: No
  Sender: FDA-Public Use
  Company Number: US-AMGEN-USASP2011054955

PATIENT
  Age: 28 Year
  Sex: Male
  Weight: 115.65 kg

DRUGS (1)
  1. ENBREL [Suspect]
     Indication: ANKYLOSING SPONDYLITIS
     Dosage: 50 MG, QWK
     Route: 058
     Dates: start: 20110601

REACTIONS (3)
  - INJECTION SITE SWELLING [None]
  - INJECTION SITE MASS [None]
  - INJECTION SITE PAIN [None]
